FAERS Safety Report 9401685 (Version 2)
Quarter: 2013Q3

REPORT INFORMATION
  Report Type: Spontaneous
  Country: US (occurrence: US)
  Receive Date: 20130716
  Receipt Date: 20130726
  Transmission Date: 20140515
  Serious: No
  Sender: FDA-Public Use
  Company Number: US-BIOGENIDEC-2013BI063351

PATIENT
  Age: 20 Year
  Sex: Female

DRUGS (4)
  1. TYSABRI [Suspect]
     Indication: MULTIPLE SCLEROSIS
     Route: 042
     Dates: start: 20120113, end: 201304
  2. IBUPROFEN [Concomitant]
     Indication: PAIN
  3. BACLOFEN [Concomitant]
     Indication: PAIN
  4. REQUIP [Concomitant]
     Indication: RESTLESS LEGS SYNDROME

REACTIONS (2)
  - Malaise [Not Recovered/Not Resolved]
  - Fatigue [Not Recovered/Not Resolved]
